FAERS Safety Report 17458475 (Version 2)
Quarter: 2021Q3

REPORT INFORMATION
  Report Type: Spontaneous
  Country: FR (occurrence: FR)
  Receive Date: 20200225
  Receipt Date: 20210920
  Transmission Date: 20211014
  Serious: Yes (Hospitalization, Other)
  Sender: FDA-Public Use
  Company Number: FR-MYLANLABS-2020M1019977

PATIENT
  Age: 71 Year
  Sex: Male

DRUGS (8)
  1. DEXAMETHASONE. [Suspect]
     Active Substance: DEXAMETHASONE
     Indication: PLASMA CELL LEUKAEMIA
     Dosage: 0.5 MILLIGRAM/KILOGRAM, 2/WEEK (1MG/KG, QW)
     Route: 065
  2. NEBIVOLOL. [Concomitant]
     Active Substance: NEBIVOLOL
     Dosage: UNK
  3. PAMIDRONIC ACID DISODIUM [Concomitant]
     Indication: HYPERCALCAEMIA
     Dosage: 60 MILLIGRAM
     Route: 042
     Dates: start: 2018
  4. DEXAMETHASONE. [Suspect]
     Active Substance: DEXAMETHASONE
     Dosage: 40 MILLIGRAM, CYCLE
     Dates: start: 2018, end: 201811
  5. CAELYX [Suspect]
     Active Substance: DOXORUBICIN HYDROCHLORIDE
     Indication: PLASMA CELL LEUKAEMIA
     Dosage: 36 MILLIGRAM/SQ. METER, CYCLE
     Dates: start: 2018, end: 201811
  6. CYCLOPHOSPHAMIDE ANHYDROUS. [Suspect]
     Active Substance: CYCLOPHOSPHAMIDE ANHYDROUS
     Dosage: 300 MILLIGRAM/SQ. METER, CYCLE
     Dates: start: 2018, end: 2018
  7. INDAPAMIDE. [Concomitant]
     Active Substance: INDAPAMIDE
     Indication: HYPERTENSION
     Dosage: UNK
  8. VELCADE [Suspect]
     Active Substance: BORTEZOMIB
     Indication: PLASMA CELL LEUKAEMIA
     Dosage: 1.3 MILLIGRAM/SQ. METER, 2/WEEK (2.6MG/SQ.METER, QW)
     Route: 065

REACTIONS (3)
  - General physical health deterioration [Unknown]
  - Nephropathy [Unknown]
  - Off label use [Unknown]

NARRATIVE: CASE EVENT DATE: 2018
